FAERS Safety Report 15156902 (Version 1)
Quarter: 2018Q3

REPORT INFORMATION
  Report Type: Spontaneous
  Country: FR (occurrence: FR)
  Receive Date: 20180718
  Receipt Date: 20180718
  Transmission Date: 20181010
  Serious: Yes (Hospitalization)
  Sender: FDA-Public Use
  Company Number: FR-SUN PHARMACEUTICAL INDUSTRIES LTD-2018RR-178642

PATIENT
  Age: 37 Year
  Sex: Male

DRUGS (2)
  1. CLENBUTEROL [Suspect]
     Active Substance: CLENBUTEROL
     Indication: PERFORMANCE ENHANCING PRODUCT USE
     Dosage: ()
     Route: 065
     Dates: start: 2016
  2. PARACETAMOL [Suspect]
     Active Substance: ACETAMINOPHEN
     Indication: PAIN
     Dosage: ()
     Route: 065

REACTIONS (1)
  - Congestive cardiomyopathy [Unknown]

NARRATIVE: CASE EVENT DATE: 201707
